FAERS Safety Report 18801303 (Version 3)
Quarter: 2022Q3

REPORT INFORMATION
  Report Type: Spontaneous
  Country: US (occurrence: US)
  Receive Date: 20210128
  Receipt Date: 20220826
  Transmission Date: 20221026
  Serious: Yes (Hospitalization, Other)
  Sender: FDA-Public Use
  Company Number: NVSC2021US019844

PATIENT
  Age: 55 Year
  Sex: Female

DRUGS (2)
  1. TERBINAFINE HYDROCHLORIDE [Suspect]
     Active Substance: TERBINAFINE HYDROCHLORIDE
     Indication: Onychomycosis
     Dosage: UNK
     Route: 065
  2. CICLOPIROX OLAMINE [Concomitant]
     Active Substance: CICLOPIROX OLAMINE
     Indication: Onychomycosis
     Dosage: UNK
     Route: 065

REACTIONS (13)
  - Acute generalised exanthematous pustulosis [Recovered/Resolved]
  - Hepatitis [Recovered/Resolved]
  - Epidermal necrosis [Recovered/Resolved]
  - Hepatic enzyme increased [Recovered/Resolved]
  - Rash [Recovered/Resolved]
  - Rash pruritic [Recovered/Resolved]
  - Skin plaque [Recovered/Resolved]
  - Pustule [Recovered/Resolved]
  - Eczema [Recovered/Resolved]
  - Skin oedema [Recovered/Resolved]
  - Extravasation blood [Recovered/Resolved]
  - Lymphocytic infiltration [Recovered/Resolved]
  - Hypersensitivity [Recovered/Resolved]
